FAERS Safety Report 4271603-2 (Version None)
Quarter: 2004Q1

REPORT INFORMATION
  Report Type: 
  Country: None (occurrence: None)
  Receive Date: 20040113
  Receipt Date: 20040107
  Transmission Date: 20041129
  Serious: Yes (Hospitalization, Other)
  Sender: FDA-Public Use
  Company Number: 2003117708

PATIENT
  Age: 44 Year
  Sex: Female

DRUGS (2)
  1. RELPAX [Suspect]
     Indication: MIGRAINE
     Dosage: 40 MG
     Dates: start: 20030501
  2. SUMATRIPTAN SUCCINATE [Suspect]
     Indication: ILL-DEFINED DISORDER

REACTIONS (2)
  - AMAUROSIS [None]
  - TRANSIENT ISCHAEMIC ATTACK [None]
